FAERS Safety Report 12610161 (Version 1)
Quarter: 2016Q3

REPORT INFORMATION
  Report Type: Spontaneous
  Country: CA (occurrence: None)
  Receive Date: 20160729
  Receipt Date: 20160729
  Transmission Date: 20161109
  Serious: Yes (Hospitalization, Other)
  Sender: FDA-Public Use
  Company Number: None

PATIENT
  Age: 15 Year
  Sex: Female
  Weight: 34.47 kg

DRUGS (4)
  1. SEROQUEL XR [Concomitant]
     Active Substance: QUETIAPINE FUMARATE
  2. MELATONIN [Concomitant]
     Active Substance: MELATONIN
  3. ATIVAN [Suspect]
     Active Substance: LORAZEPAM
     Indication: ANXIETY
     Route: 048
     Dates: start: 20120106, end: 20120106
  4. ATIVAN [Suspect]
     Active Substance: LORAZEPAM
     Indication: PANIC ATTACK
     Route: 048
     Dates: start: 20120106, end: 20120106

REACTIONS (4)
  - Anger [None]
  - Dehydration [None]
  - Disorientation [None]
  - Anxiety [None]

NARRATIVE: CASE EVENT DATE: 20120106
